FAERS Safety Report 14216407 (Version 1)
Quarter: 2017Q4

REPORT INFORMATION
  Report Type: Spontaneous
  Country: US (occurrence: US)
  Receive Date: 20171122
  Receipt Date: 20171122
  Transmission Date: 20180321
  Serious: Yes (Other)
  Sender: FDA-Public Use
  Company Number: US-ASTRAZENECA-2017SF17022

PATIENT
  Age: 72 Year
  Sex: Female
  Weight: 54 kg

DRUGS (11)
  1. PRILOSEC [Suspect]
     Active Substance: OMEPRAZOLE MAGNESIUM
     Indication: GASTROOESOPHAGEAL REFLUX DISEASE
     Route: 048
  2. PRILOSEC [Suspect]
     Active Substance: OMEPRAZOLE MAGNESIUM
     Indication: GASTROOESOPHAGEAL REFLUX DISEASE
     Route: 048
  3. BRILINTA [Suspect]
     Active Substance: TICAGRELOR
     Indication: VASCULAR GRAFT STENOSIS
     Route: 048
     Dates: start: 201710, end: 201710
  4. BISOPROLOL [Concomitant]
     Active Substance: BISOPROLOL
     Indication: HYPERTENSION
     Route: 048
  5. PRAVASTATIN. [Concomitant]
     Active Substance: PRAVASTATIN
     Indication: BLOOD CHOLESTEROL ABNORMAL
     Route: 048
  6. PRILOSEC [Suspect]
     Active Substance: OMEPRAZOLE MAGNESIUM
     Indication: GASTROOESOPHAGEAL REFLUX DISEASE
     Route: 048
  7. ASPIRIN. [Concomitant]
     Active Substance: ASPIRIN
     Indication: HYPERTENSION
     Route: 048
  8. PROAIR HFA [Concomitant]
     Active Substance: ALBUTEROL SULFATE
     Indication: ASTHMA
     Dosage: AS REQUIRED
     Route: 055
  9. PRILOSEC [Suspect]
     Active Substance: OMEPRAZOLE MAGNESIUM
     Indication: GASTROOESOPHAGEAL REFLUX DISEASE
     Dosage: OMEPRAZOLE 20 MG ONCE DAILY
     Route: 048
  10. BRILINTA [Suspect]
     Active Substance: TICAGRELOR
     Indication: VASCULAR GRAFT STENOSIS
     Route: 048
     Dates: start: 201710
  11. ADVAIR HFA [Concomitant]
     Active Substance: FLUTICASONE PROPIONATE\SALMETEROL XINAFOATE
     Indication: ASTHMA
     Dosage: TWO TIMES A DAY
     Route: 055

REACTIONS (18)
  - Ear infection [Unknown]
  - Drug hypersensitivity [Unknown]
  - Abdominal discomfort [Unknown]
  - Anxiety [Unknown]
  - Pain in extremity [Unknown]
  - Intentional product misuse [Unknown]
  - Tympanic membrane perforation [Unknown]
  - Cardiac disorder [Unknown]
  - Hypoacusis [Unknown]
  - Epistaxis [Unknown]
  - Drug intolerance [Recovered/Resolved]
  - Vascular graft stenosis [Unknown]
  - Blood potassium decreased [Unknown]
  - Vulvovaginal mycotic infection [Unknown]
  - Insomnia [Recovered/Resolved]
  - Feeling abnormal [Recovered/Resolved]
  - Chronic sinusitis [Unknown]
  - Malaise [Recovered/Resolved]

NARRATIVE: CASE EVENT DATE: 2017
